FAERS Safety Report 5042373-5 (Version None)
Quarter: 2006Q3

REPORT INFORMATION
  Report Type: 
  Country: None (occurrence: None)
  Receive Date: 20060705
  Receipt Date: 20060627
  Transmission Date: 20061208
  Serious: Yes (Other)
  Sender: FDA-Public Use
  Company Number: PHBS2006BR09617

PATIENT
  Age: 49 Year
  Sex: Male
  Weight: 82 kg

DRUGS (1)
  1. FORASEQ [Suspect]
     Indication: PNEUMONIA
     Dosage: UNK, BID
     Dates: start: 20060301

REACTIONS (1)
  - MOUTH HAEMORRHAGE [None]
